FAERS Safety Report 5147083-1 (Version None)
Quarter: 2006Q4

REPORT INFORMATION
  Report Type: 
  Country: None (occurrence: None)
  Receive Date: 20061103
  Receipt Date: 20061018
  Transmission Date: 20070319
  Serious: Yes (Death)
  Sender: FDA-Public Use
  Company Number: 230018

PATIENT
  Age: 73 Year
  Sex: Male

DRUGS (2)
  1. TENECTEPLASE (TENECTEPLASE) PWDR + SOLVENT, INJECTION SOLN, 50MG [Suspect]
     Indication: MYOCARDIAL INFARCTION
  2. HEPARIN [Suspect]
     Indication: MYOCARDIAL INFARCTION

REACTIONS (2)
  - PNEUMONIA ASPIRATION [None]
  - SUDDEN DEATH [None]
